FAERS Safety Report 9316912 (Version 1)
Quarter: 2013Q2

REPORT INFORMATION
  Report Type: Spontaneous
  Country: US (occurrence: US)
  Receive Date: 20130530
  Receipt Date: 20130530
  Transmission Date: 20140414
  Serious: No
  Sender: FDA-Public Use
  Company Number: US-009507513-1305USA016877

PATIENT
  Age: 61 Year
  Sex: Male

DRUGS (2)
  1. REBETOL [Suspect]
     Indication: HEPATITIS C
     Dosage: UNK
     Route: 048
     Dates: start: 20130516, end: 20130526
  2. PEGASYS [Suspect]
     Indication: HEPATITIS C
     Dosage: UNK
     Route: 048
     Dates: start: 20130516, end: 20130526

REACTIONS (4)
  - Diarrhoea [Unknown]
  - Nervous system disorder [Unknown]
  - Decreased appetite [Unknown]
  - Drug intolerance [Unknown]
